FAERS Safety Report 24544859 (Version 2)
Quarter: 2025Q1

REPORT INFORMATION
  Report Type: Report from Study
  Country: US (occurrence: US)
  Receive Date: 20241024
  Receipt Date: 20250307
  Transmission Date: 20250409
  Serious: No
  Sender: ACADIA PHARMACEUTICALS
  Company Number: US-ACADIA PHARMACEUTICALS INC.-ACA-2024-PIM-006196

PATIENT
  Sex: Female

DRUGS (8)
  1. NUPLAZID [Suspect]
     Active Substance: PIMAVANSERIN TARTRATE
     Indication: Parkinson^s disease psychosis
     Dosage: 34 MILLIGRAM, QD
     Route: 048
     Dates: start: 202305, end: 20240918
  2. CLEARLAX [Concomitant]
     Active Substance: POLYETHYLENE GLYCOL 3350
  3. ASPIRIN [Concomitant]
     Active Substance: ASPIRIN
  4. CALCIUM [Concomitant]
     Active Substance: CALCIUM
  5. SUPER MULTIPLE [Concomitant]
  6. MAXEPA [FISH OIL] [Concomitant]
  7. GLUCOSAMINE [Concomitant]
     Active Substance: GLUCOSAMINE
  8. CHONDROITIN [Concomitant]
     Active Substance: CHONDROITIN

REACTIONS (1)
  - Urinary tract infection [Not Recovered/Not Resolved]
